FAERS Safety Report 8896239 (Version 1)
Quarter: 2012Q4

REPORT INFORMATION
  Report Type: Spontaneous
  Country: US (occurrence: None)
  Receive Date: 20121106
  Receipt Date: 20121106
  Transmission Date: 20130627
  Serious: Yes (Hospitalization)
  Sender: FDA-Public Use
  Company Number: None

PATIENT
  Age: 64 Year
  Sex: Male

DRUGS (1)
  1. NEXAVAR [Suspect]
     Indication: CANCER
     Dosage: 400 mg BID PO
     Route: 048
     Dates: start: 20120905, end: 20121026

REACTIONS (4)
  - Diarrhoea [None]
  - Abdominal distension [None]
  - Asthenia [None]
  - Fluid retention [None]
